FAERS Safety Report 16021509 (Version 2)
Quarter: 2019Q2

REPORT INFORMATION
  Report Type: Spontaneous
  Country: US (occurrence: US)
  Receive Date: 20190301
  Receipt Date: 20190507
  Transmission Date: 20190711
  Serious: No
  Sender: FDA-Public Use
  Company Number: US-ALK-ABELLO A/S-2019AA000271

PATIENT

DRUGS (21)
  1. STAE BULK 504 [Suspect]
     Active Substance: DERMATOPHAGOIDES FARINAE
     Indication: PRODUCT USED FOR UNKNOWN INDICATION
     Dosage: UNK
  2. STAE BULK 504 [Suspect]
     Active Substance: DERMATOPHAGOIDES FARINAE
     Dosage: UNK
  3. STAE BULK 503 [Suspect]
     Active Substance: DERMATOPHAGOIDES PTERONYSSINUS
     Dosage: UNK
  4. TAE BULK 419 (FUSARIUM ROSEUM) [Suspect]
     Active Substance: GIBBERELLA ZEAE
     Dosage: UNK
  5. PENICILLIUM NOTATUM [Suspect]
     Active Substance: PENICILLIUM CHRYSOGENUM VAR. CHRYSOGENUM
     Dosage: UNK
  6. TAE BULK 405 [Suspect]
     Active Substance: ASPERGILLUS FUMIGATUS
     Indication: PRODUCT USED FOR UNKNOWN INDICATION
     Dosage: UNK
  7. TAE BULK 405 [Suspect]
     Active Substance: ASPERGILLUS FUMIGATUS
     Dosage: UNK
  8. STAE BULK 503 [Suspect]
     Active Substance: DERMATOPHAGOIDES PTERONYSSINUS
     Indication: PRODUCT USED FOR UNKNOWN INDICATION
     Dosage: UNK
  9. TAE BULK 416 [Suspect]
     Active Substance: CLADOSPORIUM CLADOSPORIOIDES
     Dosage: UNK
  10. PENICILLIUM NOTATUM [Suspect]
     Active Substance: PENICILLIUM CHRYSOGENUM VAR. CHRYSOGENUM
     Indication: PRODUCT USED FOR UNKNOWN INDICATION
     Dosage: UNK
  11. TAE BULK 402 [Suspect]
     Active Substance: ALTERNARIA ALTERNATA
     Dosage: UNK
  12. TAE BULK 1324 (DRECHSLERA SOROKINIANA) [Suspect]
     Active Substance: COCHLIOBOLUS SATIVUS
     Indication: PRODUCT USED FOR UNKNOWN INDICATION
     Dosage: UNK
  13. TAE BULK 1324 (DRECHSLERA SOROKINIANA) [Suspect]
     Active Substance: COCHLIOBOLUS SATIVUS
     Dosage: UNK
  14. TAE BULK 419 (FUSARIUM ROSEUM) [Suspect]
     Active Substance: GIBBERELLA ZEAE
     Indication: PRODUCT USED FOR UNKNOWN INDICATION
     Dosage: UNK
  15. STAE BULK 503 [Suspect]
     Active Substance: DERMATOPHAGOIDES PTERONYSSINUS
     Dosage: UNK
  16. TAE BULK 405 [Suspect]
     Active Substance: ASPERGILLUS FUMIGATUS
     Dosage: UNK
  17. STAE BULK 504 [Suspect]
     Active Substance: DERMATOPHAGOIDES FARINAE
     Dosage: UNK
  18. TAE BULK 402 [Suspect]
     Active Substance: ALTERNARIA ALTERNATA
     Indication: PRODUCT USED FOR UNKNOWN INDICATION
     Dosage: UNK
  19. TAE BULK 419 (FUSARIUM ROSEUM) [Suspect]
     Active Substance: GIBBERELLA ZEAE
     Dosage: UNK
  20. PENICILLIUM NOTATUM [Suspect]
     Active Substance: PENICILLIUM CHRYSOGENUM VAR. CHRYSOGENUM
     Dosage: UNK
  21. TAE BULK 416 [Suspect]
     Active Substance: CLADOSPORIUM CLADOSPORIOIDES
     Indication: PRODUCT USED FOR UNKNOWN INDICATION
     Dosage: UNK

REACTIONS (2)
  - Injection site dryness [Recovered/Resolved]
  - Adverse reaction [Unknown]

NARRATIVE: CASE EVENT DATE: 20180825
